FAERS Safety Report 19781740 (Version 1)
Quarter: 2021Q3

REPORT INFORMATION
  Report Type: Spontaneous
  Country: US (occurrence: US)
  Receive Date: 20210902
  Receipt Date: 20210902
  Transmission Date: 20211014
  Serious: No
  Sender: FDA-Public Use
  Company Number: US-ENDO PHARMACEUTICALS INC-2021-009845

PATIENT

DRUGS (2)
  1. NSAIDS (UNSPECIFIED) [Suspect]
     Active Substance: UNSPECIFIED INGREDIENT
     Indication: IMMUNISATION REACTION
     Dosage: UNK UNKNOWN, UNK
     Route: 065
  2. PREDNISONE. [Suspect]
     Active Substance: PREDNISONE
     Indication: IMMUNISATION REACTION
     Dosage: UNK UNKNOWN, UNK
     Route: 065

REACTIONS (1)
  - Drug ineffective [Unknown]
